FAERS Safety Report 8908314 (Version 1)
Quarter: 2012Q4

REPORT INFORMATION
  Report Type: 
  Country: US (occurrence: US)
  Receive Date: 20121113
  Receipt Date: 20121113
  Transmission Date: 20130627
  Serious: Yes (Hospitalization, Other)
  Sender: FDA-Public Use
  Company Number: PHEH2012US022330

PATIENT
  Sex: Female
  Weight: 56.24 kg

DRUGS (6)
  1. RECLAST [Suspect]
     Indication: OSTEOPOROSIS
     Dosage: UNK UKN, UNK
     Route: 042
  2. HUMIRA [Suspect]
     Indication: RHEUMATOID ARTHRITIS
     Dosage: 40 mg, UNK
     Dates: start: 200802, end: 20120917
  3. TRAMADOL [Concomitant]
     Dosage: UNK UKN, UNK
  4. CO-ADVIL [Concomitant]
     Dosage: UNK UKN, UNK
  5. TYLENOL [Concomitant]
     Dosage: UNK UKN, UNK
  6. VICODIN [Concomitant]
     Dosage: UNK UKN, UNK

REACTIONS (6)
  - Fall [Recovered/Resolved]
  - Lower limb fracture [Recovered/Resolved]
  - Hip fracture [Recovered/Resolved]
  - Arthropathy [Unknown]
  - Impaired healing [Recovered/Resolved]
  - Incision site infection [Recovered/Resolved]
